FAERS Safety Report 17871352 (Version 1)
Quarter: 2020Q2

REPORT INFORMATION
  Report Type: Spontaneous
  Country: US (occurrence: US)
  Receive Date: 20200608
  Receipt Date: 20200608
  Transmission Date: 20200714
  Serious: Yes (Other)
  Sender: FDA-Public Use
  Company Number: None

PATIENT
  Age: 63 Year
  Sex: Female
  Weight: 73.35 kg

DRUGS (1)
  1. HIZENTRA [Suspect]
     Active Substance: HUMAN IMMUNOGLOBULIN G
     Indication: MYASTHENIA GRAVIS
     Route: 058
     Dates: start: 20200327, end: 20200409

REACTIONS (6)
  - Hyperhidrosis [None]
  - Back pain [None]
  - Flushing [None]
  - Burning sensation [None]
  - Nausea [None]
  - Respiration abnormal [None]

NARRATIVE: CASE EVENT DATE: 20200327
